FAERS Safety Report 9351714 (Version 1)
Quarter: 2013Q2

REPORT INFORMATION
  Report Type: Spontaneous
  Country: GB (occurrence: None)
  Receive Date: 20130612
  Receipt Date: 20130612
  Transmission Date: 20140414
  Serious: Yes (Hospitalization)
  Sender: FDA-Public Use
  Company Number: 2013-224

PATIENT
  Age: 39 Year
  Sex: Male

DRUGS (3)
  1. CLOZAPINE [Suspect]
     Indication: SCHIZOPHRENIA
     Route: 048
  2. SODIUM VALPROATE [Suspect]
     Indication: CONVULSION PROPHYLAXIS
     Route: 048
  3. AZITHROMYCIN [Suspect]
     Indication: URETHRITIS

REACTIONS (10)
  - Toxicity to various agents [None]
  - Urethritis [None]
  - Schizophrenia [None]
  - Gait disturbance [None]
  - Disorientation [None]
  - Incoherent [None]
  - Dysarthria [None]
  - Drug interaction [None]
  - Tremor [None]
  - Weight decreased [None]
